FAERS Safety Report 8024641-8 (Version None)
Quarter: 2011Q4

REPORT INFORMATION
  Report Type: 
  Country: None (occurrence: None)
  Receive Date: 20111130
  Receipt Date: 20111007
  Transmission Date: 20120403
  Serious: Yes (Other)
  Sender: FDA-Public Use
  Company Number: PHEH2011US04151

PATIENT
  Age: 69 Year
  Sex: Female
  Weight: 73.9 kg

DRUGS (3)
  1. TEKTURNA [Suspect]
     Indication: HYPERTENSION
     Dosage: 150 MG, QD, ORAL
     Route: 048
     Dates: start: 20110906, end: 20110910
  2. DIOAVN HCT (HYDROCHLOROTHIAZIDE, VALSARTAN) [Concomitant]
  3. INFLUENZA VACCINE (INFLUENZA VACCINE) [Concomitant]

REACTIONS (3)
  - ANGIOEDEMA [None]
  - VISION BLURRED [None]
  - DIARRHOEA [None]
